FAERS Safety Report 13243517 (Version 2)
Quarter: 2017Q1

REPORT INFORMATION
  Report Type: Spontaneous
  Country: FR (occurrence: FR)
  Receive Date: 20170217
  Receipt Date: 20170313
  Transmission Date: 20170428
  Serious: Yes (Other)
  Sender: FDA-Public Use
  Company Number: FR-009507513-1702FRA003048

PATIENT
  Age: 28 Year
  Sex: Female

DRUGS (7)
  1. ATARAX [Suspect]
     Active Substance: HYDROXYZINE HYDROCHLORIDE
     Dosage: 50 MG, QD
     Route: 030
     Dates: start: 20170120
  2. ADALAT [Suspect]
     Active Substance: NIFEDIPINE
     Indication: TOCOLYSIS
     Dosage: 10 MG EVERY 10 MINUTES
     Route: 048
     Dates: start: 20170120
  3. ATOSIBAN [Suspect]
     Active Substance: ATOSIBAN
     Dosage: FORMULATION : SOLUTION TO BE DILUTED FOR INFUSION, STRENGTH 37.5 MG/5ML
     Route: 041
     Dates: start: 20170121, end: 20170123
  4. ATOSIBAN [Suspect]
     Active Substance: ATOSIBAN
     Dosage: IV(BOLUS) INJECTABLE SOLUTION, , STRENGTH 6.75 MG/0.9 ML
     Route: 040
     Dates: start: 20170121, end: 20170121
  5. CELESTENE 4MG/1ML [Suspect]
     Active Substance: BETAMETHASONE
     Dosage: 12 MG, DAILY, AT NOON
     Route: 030
     Dates: start: 20170120
  6. SALBUMOL [Suspect]
     Active Substance: ALBUTEROL SULFATE
     Dosage: UNKNOWN
     Route: 065
     Dates: start: 20170120
  7. SPASFON [Suspect]
     Active Substance: PHLOROGLUCINOL
     Indication: TOCOLYSIS
     Dosage: FORMULATION : INJECTABLE SOLUTION IN AMPOULE
     Route: 058
     Dates: start: 20170120

REACTIONS (4)
  - Thirst [Recovered/Resolved]
  - Headache [Recovered/Resolved]
  - Eye pain [Recovered/Resolved]
  - Lacrimation increased [Recovered/Resolved]

NARRATIVE: CASE EVENT DATE: 20170123
